FAERS Safety Report 25956695 (Version 1)
Quarter: 2025Q4

REPORT INFORMATION
  Report Type: Spontaneous
  Country: US (occurrence: US)
  Receive Date: 20251024
  Receipt Date: 20251024
  Transmission Date: 20260118
  Serious: No
  Sender: HISAMITSU PHARMACEUTICAL CO., INC.
  Company Number: US-HISAMITSU PHARMACEUTICAL CO., INC.-2025-NOV-US001050

PATIENT
  Age: 25 Year
  Sex: Female

DRUGS (1)
  1. ASENAPINE [Suspect]
     Active Substance: ASENAPINE
     Indication: Bipolar I disorder
     Dosage: UNKNOWN, UNK
     Route: 060

REACTIONS (6)
  - Hypoaesthesia oral [Unknown]
  - Paraesthesia oral [Unknown]
  - Thirst [Unknown]
  - Oral discomfort [Unknown]
  - Glossodynia [Unknown]
  - Sedation [Unknown]
